FAERS Safety Report 12471463 (Version 1)
Quarter: 2016Q2

REPORT INFORMATION
  Report Type: Spontaneous
  Country: US (occurrence: None)
  Receive Date: 20160615
  Receipt Date: 20160615
  Transmission Date: 20160815
  Serious: No
  Sender: FDA-Public Use
  Company Number: None

PATIENT
  Age: 62 Year
  Sex: Male

DRUGS (1)
  1. AFINITOR [Suspect]
     Active Substance: EVEROLIMUS

REACTIONS (4)
  - Diarrhoea [None]
  - Heart rate increased [None]
  - Blood potassium decreased [None]
  - Dehydration [None]

NARRATIVE: CASE EVENT DATE: 20160605
